FAERS Safety Report 11240181 (Version 2)
Quarter: 2015Q3

REPORT INFORMATION
  Report Type: Spontaneous
  Country: TR (occurrence: TR)
  Receive Date: 20150706
  Receipt Date: 20150723
  Transmission Date: 20151125
  Serious: Yes (Other)
  Sender: FDA-Public Use
  Company Number: PHHY2015TR078070

PATIENT
  Age: 68 Year
  Sex: Male
  Weight: 80 kg

DRUGS (15)
  1. CRESTAR [Concomitant]
     Indication: ARTERIOSCLEROSIS
     Dosage: 10 MG, ONCE/SINGLE
     Route: 065
  2. TRANKO BUSKAS [Concomitant]
     Indication: GASTROOESOPHAGEAL REFLUX DISEASE
     Route: 048
  3. SPIRIVA [Concomitant]
     Active Substance: TIOTROPIUM BROMIDE MONOHYDRATE
     Indication: CHRONIC OBSTRUCTIVE PULMONARY DISEASE
     Route: 055
  4. ALLOPURINOL. [Suspect]
     Active Substance: ALLOPURINOL
     Dosage: UNK
  5. ASIVIRAL [Concomitant]
     Active Substance: ACYCLOVIR
     Indication: HERPES ZOSTER
     Route: 061
     Dates: start: 20150418, end: 20150516
  6. SERETAIDE DISKUS [Concomitant]
     Indication: CHRONIC OBSTRUCTIVE PULMONARY DISEASE
     Route: 055
  7. PLAVIX [Concomitant]
     Active Substance: CLOPIDOGREL BISULFATE
     Indication: HAEMODILUTION
     Dosage: 75 MG, ONCE/SINGLE
     Route: 065
  8. PLETAL [Concomitant]
     Active Substance: CILOSTAZOL
     Indication: ARTERIOSCLEROSIS
     Dosage: 100 MG, BID
     Route: 048
  9. BENEXOL [Concomitant]
     Active Substance: CYANOCOBALAMIN\PYRIDOXINE\THIAMINE
     Indication: PRODUCT USED FOR UNKNOWN INDICATION
     Route: 048
  10. XANTHIUM [Concomitant]
     Indication: CHRONIC OBSTRUCTIVE PULMONARY DISEASE
     Route: 048
     Dates: start: 2005
  11. BELOZOK [Concomitant]
     Active Substance: METOPROLOL SUCCINATE
     Indication: ARRHYTHMIA
     Dosage: 95 MG, ONCE/SINGLE
     Route: 048
  12. TARDYFERON [Concomitant]
     Active Substance: FERROUS SULFATE\FOLIC ACID
     Indication: ANAEMIA
     Dosage: 80 MG, ONCE/SINGLE
     Route: 048
  13. ALLOPURINOL. [Suspect]
     Active Substance: ALLOPURINOL
     Indication: HYPERURICAEMIA
     Dosage: 300 MG, ONCE/SINGLE
     Route: 048
     Dates: start: 20150325
  14. CO-DIOVAN [Concomitant]
     Active Substance: HYDROCHLOROTHIAZIDE\VALSARTAN
     Indication: HYPERTENSION
     Route: 048
  15. EXCIPIAL [Concomitant]
     Indication: DRY SKIN
     Route: 061
     Dates: start: 20150418

REACTIONS (4)
  - Blister [Not Recovered/Not Resolved]
  - Rash pruritic [Recovered/Resolved]
  - Herpes zoster [Not Recovered/Not Resolved]
  - Pruritus [Not Recovered/Not Resolved]

NARRATIVE: CASE EVENT DATE: 20150418
